FAERS Safety Report 4569039-X (Version None)
Quarter: 2005Q1

REPORT INFORMATION
  Report Type: 
  Country: None (occurrence: None)
  Receive Date: 20050125
  Receipt Date: 20050125
  Transmission Date: 20050727
  Serious: Yes (Hospitalization)
  Sender: FDA-Public Use
  Company Number: None

PATIENT
  Age: 45 Year
  Sex: Female
  Weight: 70.3075 kg

DRUGS (3)
  1. ZELNORM [Suspect]
     Indication: IRRITABLE BOWEL SYNDROME
     Dosage: QD
  2. LIBRAX [Concomitant]
  3. ALLEGRA [Concomitant]

REACTIONS (4)
  - BILIARY TRACT DISORDER [None]
  - PAIN IN EXTREMITY [None]
  - PANCREATITIS CHRONIC [None]
  - VOMITING [None]
